FAERS Safety Report 17650622 (Version 1)
Quarter: 2020Q2

REPORT INFORMATION
  Report Type: Spontaneous
  Country: TN (occurrence: TN)
  Receive Date: 20200409
  Receipt Date: 20200409
  Transmission Date: 20200713
  Serious: Yes (Other)
  Sender: FDA-Public Use
  Company Number: TN-ACCORD-178275

PATIENT
  Sex: Female

DRUGS (1)
  1. CARBOPLATIN. [Suspect]
     Active Substance: CARBOPLATIN
     Indication: CHEMOTHERAPY

REACTIONS (4)
  - IgA nephropathy [Unknown]
  - Renal failure [Unknown]
  - Paraneoplastic glomerulonephritis [Unknown]
  - Renal tubular necrosis [Unknown]
